FAERS Safety Report 7214332-5 (Version None)
Quarter: 2010Q4

REPORT INFORMATION
  Report Type: 
  Country: None (occurrence: None)
  Receive Date: 20101126
  Receipt Date: 20100824
  Transmission Date: 20110411
  Serious: Yes (Other)
  Sender: FDA-Public Use
  Company Number: WAES 1008USA03507

PATIENT
  Sex: Female

DRUGS (1)
  1. FOSAMAX [Suspect]

REACTIONS (1)
  - OSTEONECROSIS [None]
